FAERS Safety Report 24320528 (Version 2)
Quarter: 2024Q4

REPORT INFORMATION
  Report Type: Spontaneous
  Country: US (occurrence: US)
  Receive Date: 20240915
  Receipt Date: 20241110
  Transmission Date: 20250115
  Serious: No
  Sender: SANOFI AVENTIS
  Company Number: US-SA-2024SA264710

PATIENT
  Age: 62 Year
  Sex: Female

DRUGS (1)
  1. DUPIXENT [Suspect]
     Active Substance: DUPILUMAB
     Dosage: 300 MG, QOW
     Route: 058

REACTIONS (7)
  - Nerve injury [Unknown]
  - Pain [Unknown]
  - Sciatica [Unknown]
  - Wound [Unknown]
  - Gait disturbance [Unknown]
  - Arthralgia [Unknown]
  - Injection site pain [Unknown]
